FAERS Safety Report 17402425 (Version 1)
Quarter: 2020Q1

REPORT INFORMATION
  Report Type: Spontaneous
  Country: US (occurrence: US)
  Receive Date: 20200210
  Receipt Date: 20200210
  Transmission Date: 20200409
  Serious: Yes (Hospitalization)
  Sender: FDA-Public Use
  Company Number: None

PATIENT
  Sex: Male

DRUGS (9)
  1. EXETIMIBE [Concomitant]
  2. CILOSTAZOL. [Concomitant]
     Active Substance: CILOSTAZOL
  3. WARFARIN [Concomitant]
     Active Substance: WARFARIN
  4. MELOXICAM. [Concomitant]
     Active Substance: MELOXICAM
  5. TELMISARTIN [Concomitant]
  6. REPATHA [Suspect]
     Active Substance: EVOLOCUMAB
     Indication: PRODUCT USED FOR UNKNOWN INDICATION
     Dosage: ?          OTHER FREQUENCY:EVERY 2 WEEK;?
     Route: 058
     Dates: start: 20190501
  7. CARVEDILOL. [Concomitant]
     Active Substance: CARVEDILOL
  8. CHLORATHALID [Concomitant]
  9. CLOPIDOGREL [Concomitant]
     Active Substance: CLOPIDOGREL BISULFATE

REACTIONS (3)
  - Localised infection [None]
  - Post procedural haemorrhage [None]
  - Post procedural complication [None]
